FAERS Safety Report 16404438 (Version 1)
Quarter: 2019Q2

REPORT INFORMATION
  Report Type: Spontaneous
  Country: US (occurrence: US)
  Receive Date: 20190607
  Receipt Date: 20190607
  Transmission Date: 20190711
  Serious: Yes (Hospitalization, Other)
  Sender: FDA-Public Use
  Company Number: US-MYLANLABS-2019M1052767

PATIENT
  Age: 67 Year
  Sex: Male
  Weight: 92.2 kg

DRUGS (2)
  1. WARFARIN [Suspect]
     Active Substance: WARFARIN
     Indication: ANTICOAGULANT THERAPY
     Route: 065
  2. ASPIRIN                            /00002701/ [Suspect]
     Active Substance: ASPIRIN
     Indication: ANTICOAGULANT THERAPY
     Route: 065

REACTIONS (8)
  - International normalised ratio increased [Recovered/Resolved]
  - Subdural haematoma [Recovering/Resolving]
  - Confusional state [Recovering/Resolving]
  - Mental status changes [Recovering/Resolving]
  - Fall [Recovered/Resolved]
  - Brain oedema [Recovering/Resolving]
  - Headache [Recovering/Resolving]
  - Cerebral haemorrhage [Recovering/Resolving]
